FAERS Safety Report 5649782-1 (Version None)
Quarter: 2008Q1

REPORT INFORMATION
  Report Type: 
  Country: None (occurrence: None)
  Receive Date: 20080303
  Receipt Date: 20080219
  Transmission Date: 20080703
  Serious: Yes (Hospitalization)
  Sender: FDA-Public Use
  Company Number: 2008SP003780

PATIENT
  Age: 28 Year
  Sex: Male
  Weight: 109 kg

DRUGS (7)
  1. TEMODAR [Suspect]
     Indication: OLIGODENDROGLIOMA
     Dosage: 470 MG; QD; PO
     Route: 048
     Dates: start: 20080121, end: 20080125
  2. KEPPRA (CON.) [Concomitant]
  3. ZOFRAN (CON.) [Concomitant]
  4. DEXAMETHASONE (CON.) [Concomitant]
  5. CENTRUM (CON.) [Concomitant]
  6. PEPCID (CON.) [Concomitant]
  7. ULTRAM (CON.) [Concomitant]

REACTIONS (2)
  - PULMONARY EMBOLISM [None]
  - THROMBOCYTOPENIA [None]
